FAERS Safety Report 9251424 (Version 4)
Quarter: 2013Q4

REPORT INFORMATION
  Report Type: Spontaneous
  Country: US (occurrence: US)
  Receive Date: 20130424
  Receipt Date: 20131011
  Transmission Date: 20140711
  Serious: Yes (Hospitalization)
  Sender: FDA-Public Use
  Company Number: US-ASTRAZENECA-2013SE27187

PATIENT
  Age: 18795 Day
  Sex: Female
  Weight: 72.6 kg

DRUGS (28)
  1. NEXIUM [Suspect]
     Route: 048
  2. NEXIUM [Suspect]
     Route: 048
     Dates: start: 2007
  3. PERMAINAN [Concomitant]
     Indication: HOT FLUSH
  4. PROZAC [Concomitant]
     Indication: DEPRESSION
  5. PROZAC [Concomitant]
     Indication: STRESS
  6. DILTIAZEM [Concomitant]
     Dates: start: 20070822
  7. HYDROCODONE/APAP [Concomitant]
     Dates: start: 20071128
  8. PREDNISONE [Concomitant]
     Dates: start: 20071128
  9. CYCLOBENZAPR [Concomitant]
     Dates: start: 20080521
  10. CARISOPRODOL [Concomitant]
     Dates: start: 20080611
  11. ASA/COD [Concomitant]
     Dates: start: 20080611
  12. PROPO-N/APAP [Concomitant]
     Dosage: 100 TO 650 TAB
     Dates: start: 20080701
  13. CEPHALEXIN [Concomitant]
     Dates: start: 20080903
  14. CYPROHEPTAD [Concomitant]
     Dates: start: 20080903
  15. NOREL [Concomitant]
     Dates: start: 20080903
  16. PAROXETINE [Concomitant]
     Dates: start: 20080903
  17. PIROXICAM [Concomitant]
     Dates: start: 20080926
  18. CLARITIN D [Concomitant]
     Dates: start: 20111013
  19. LISINOP/HCTZ [Concomitant]
     Dates: start: 20100823
  20. CYMBALTA [Concomitant]
     Dates: start: 2004
  21. XANAX [Concomitant]
     Dates: start: 20100908
  22. NAPROXEN [Concomitant]
     Dates: start: 20101102
  23. OMEPRAZOLE [Concomitant]
     Dates: start: 20130813
  24. ALLEGRA [Concomitant]
     Dates: start: 2007
  25. PROTONIX [Concomitant]
     Dates: start: 2007
  26. AVELOX [Concomitant]
  27. PNEUMOTUSSIN [Concomitant]
  28. ANCEF [Concomitant]
     Route: 030

REACTIONS (7)
  - Osteoarthritis [Unknown]
  - Osteoporosis [Unknown]
  - Bone disorder [Unknown]
  - Multiple fractures [Unknown]
  - Musculoskeletal pain [Unknown]
  - Exostosis [Unknown]
  - Depression [Unknown]
